FAERS Safety Report 9825387 (Version 1)
Quarter: 2014Q1

REPORT INFORMATION
  Report Type: Spontaneous
  Country: US (occurrence: US)
  Receive Date: 20140117
  Receipt Date: 20140117
  Transmission Date: 20141002
  Serious: No
  Sender: FDA-Public Use
  Company Number: US-PFIZER INC-2014014095

PATIENT
  Age: 39 Year
  Sex: Female
  Weight: 74.83 kg

DRUGS (1)
  1. RELPAX [Suspect]
     Indication: MIGRAINE
     Dosage: UNK, AS NEEDED
     Dates: start: 2011

REACTIONS (2)
  - Drug ineffective [Unknown]
  - Bedridden [Unknown]
